FAERS Safety Report 6929145-9 (Version None)
Quarter: 2010Q3

REPORT INFORMATION
  Report Type: 
  Country: None (occurrence: None)
  Receive Date: 20100817
  Receipt Date: 20100812
  Transmission Date: 20110219
  Serious: Yes (Hospitalization)
  Sender: FDA-Public Use
  Company Number: FR-MERCK-1008FRA00038

PATIENT
  Age: 39 Year
  Sex: Male

DRUGS (14)
  1. INVANZ [Suspect]
     Indication: NOCARDIOSIS
     Route: 041
     Dates: start: 20091014, end: 20091102
  2. INVANZ [Suspect]
     Route: 041
     Dates: start: 20091106
  3. WARFARIN SODIUM [Concomitant]
     Indication: THROMBOSIS PROPHYLAXIS
     Route: 048
  4. VENLAFAXINE HYDROCHLORIDE [Concomitant]
     Indication: DEPRESSION
     Route: 048
  5. LERCANIDIPINE HYDROCHLORIDE [Concomitant]
     Indication: HYPERTENSION
     Route: 048
  6. CLONAZEPAM [Concomitant]
     Indication: EPILEPSY
     Route: 048
  7. VALPROATE SODIUM [Concomitant]
     Indication: EPILEPSY
     Route: 048
  8. OMEPRAZOLE [Concomitant]
     Route: 048
  9. PERINDOPRIL ARGININE [Concomitant]
     Indication: HYPERTENSION
     Route: 048
  10. HYDROXYZINE HYDROCHLORIDE [Concomitant]
     Route: 048
  11. TRAMADOL HYDROCHLORIDE [Concomitant]
     Indication: PAIN
     Route: 048
  12. CALCIUM CARBONATE AND CHOLECALCIFEROL [Concomitant]
     Indication: CALCIUM DEFICIENCY
     Route: 048
  13. FERROUS SULFATE AND FOLIC ACID [Concomitant]
     Route: 048
  14. PREGABALIN [Concomitant]
     Route: 048

REACTIONS (1)
  - ENCEPHALOPATHY [None]
